FAERS Safety Report 14113846 (Version 2)
Quarter: 2017Q4

REPORT INFORMATION
  Report Type: Report from Study
  Country: US (occurrence: US)
  Receive Date: 20171023
  Receipt Date: 20171108
  Transmission Date: 20180321
  Serious: Yes (Hospitalization, Other)
  Sender: FDA-Public Use
  Company Number: US-AMGEN-USASL2017159195

PATIENT
  Age: 74 Year
  Sex: Male
  Weight: 94.65 kg

DRUGS (2)
  1. IMLYGIC [Suspect]
     Active Substance: TALIMOGENE LAHERPAREPVEC
     Indication: MALIGNANT MELANOMA
     Dosage: 4 ML, Q2WK
     Route: 065
     Dates: start: 20160602, end: 201610
  2. IMLYGIC [Suspect]
     Active Substance: TALIMOGENE LAHERPAREPVEC
     Dosage: 4 ML, Q2WK
     Route: 065
     Dates: start: 20161122, end: 201612

REACTIONS (3)
  - Dyspnoea [Unknown]
  - Renal failure [Not Recovered/Not Resolved]
  - Melanoma recurrent [Unknown]

NARRATIVE: CASE EVENT DATE: 2016
